FAERS Safety Report 4789024-2 (Version None)
Quarter: 2005Q4

REPORT INFORMATION
  Report Type: 
  Country: None (occurrence: None)
  Receive Date: 20051003
  Receipt Date: 20050628
  Transmission Date: 20060501
  Serious: No
  Sender: FDA-Public Use
  Company Number: SU-2005-003501

PATIENT
  Age: 35 Year
  Sex: Male
  Weight: 101.1521 kg

DRUGS (2)
  1. BENICAR HCT [Suspect]
     Indication: HYPERTENSION
     Dosage: 40.25 MG QD PO
     Route: 048
     Dates: start: 20041230
  2. NEXIUM [Concomitant]

REACTIONS (2)
  - ALANINE AMINOTRANSFERASE INCREASED [None]
  - ASPARTATE AMINOTRANSFERASE INCREASED [None]
